FAERS Safety Report 10504226 (Version 2)
Quarter: 2014Q4

REPORT INFORMATION
  Report Type: Spontaneous
  Country: IL (occurrence: IL)
  Receive Date: 20141008
  Receipt Date: 20141008
  Transmission Date: 20150528
  Serious: Yes (Death, Other)
  Sender: FDA-Public Use
  Company Number: IL-NOVOPROD-423266

PATIENT
  Age: 70 Year
  Sex: Male

DRUGS (1)
  1. VICTOZA [Suspect]
     Active Substance: LIRAGLUTIDE
     Indication: TYPE 2 DIABETES MELLITUS
     Dosage: 1.2 MG OR 1.8MG
     Route: 065

REACTIONS (4)
  - Death [Fatal]
  - Metastases to gastrointestinal tract [Unknown]
  - Pancreatic carcinoma metastatic [Unknown]
  - Hepatic cancer metastatic [Unknown]
